FAERS Safety Report 9773721 (Version 1)
Quarter: 2013Q4

REPORT INFORMATION
  Report Type: Report from Study
  Country: TH (occurrence: TH)
  Receive Date: 20131219
  Receipt Date: 20131219
  Transmission Date: 20140711
  Serious: Yes (Life-Threatening)
  Sender: FDA-Public Use
  Company Number: TH-GILEAD-2013-0090301

PATIENT
  Age: 20 Year
  Sex: Female
  Weight: 65.2 kg

DRUGS (2)
  1. BLINDED PLACEBO [Suspect]
     Indication: HEPATITIS B
     Dosage: 300 MG, QD
     Route: 048
     Dates: start: 20130514, end: 20130921
  2. BLINDED TENOFOVIR DISOPROXIL FUMARATE [Suspect]
     Indication: HEPATITIS B
     Dosage: 300 MG, QD
     Route: 048
     Dates: start: 20130514, end: 20130921

REACTIONS (2)
  - Hepatitis [Not Recovered/Not Resolved]
  - Pregnancy [Recovered/Resolved]
